FAERS Safety Report 8236933-8 (Version None)
Quarter: 2012Q1

REPORT INFORMATION
  Report Type: 
  Country: None (occurrence: None)
  Receive Date: 20120327
  Receipt Date: 20120315
  Transmission Date: 20120608
  Serious: Yes (Hospitalization)
  Sender: FDA-Public Use
  Company Number: PHEH2012US005971

PATIENT
  Sex: Female

DRUGS (2)
  1. TASIGNA [Suspect]
     Dosage: 400 MG, BID
     Route: 048
     Dates: end: 20120301
  2. TASIGNA [Suspect]
     Dosage: 400 MG, BID
     Dates: start: 20120313

REACTIONS (3)
  - CROHN'S DISEASE [None]
  - BLOOD POTASSIUM DECREASED [None]
  - DIARRHOEA [None]
